FAERS Safety Report 13203323 (Version 1)
Quarter: 2017Q1

REPORT INFORMATION
  Report Type: Report from Study
  Country: DE (occurrence: DE)
  Receive Date: 20170208
  Receipt Date: 20170208
  Transmission Date: 20170428
  Serious: Yes (Other)
  Sender: FDA-Public Use
  Company Number: DE-TEVA-717108GER

PATIENT
  Sex: Female

DRUGS (3)
  1. TRILEPTAL [Concomitant]
     Active Substance: OXCARBAZEPINE
     Indication: EPILEPSY
     Dosage: 1200 MILLIGRAM DAILY;
     Route: 048
     Dates: start: 20030311
  2. OPIPRAMOL [Concomitant]
     Active Substance: OPIPRAMOL
     Indication: ANXIETY
     Dosage: 50 MG TO 100 MG
     Route: 048
  3. COPAXONE [Suspect]
     Active Substance: GLATIRAMER ACETATE
     Indication: MULTIPLE SCLEROSIS
     Dosage: 20 MILLIGRAM DAILY;
     Route: 058
     Dates: start: 20031111

REACTIONS (2)
  - Pancreatic carcinoma [Not Recovered/Not Resolved]
  - Metastases to liver [Not Recovered/Not Resolved]

NARRATIVE: CASE EVENT DATE: 2016
